FAERS Safety Report 13693484 (Version 2)
Quarter: 2017Q3

REPORT INFORMATION
  Report Type: Report from Study
  Country: CO (occurrence: CO)
  Receive Date: 20170627
  Receipt Date: 20170717
  Transmission Date: 20171127
  Serious: Yes (Hospitalization, Other)
  Sender: FDA-Public Use
  Company Number: CO-REGENERON PHARMACEUTICALS, INC.-2017-17706

PATIENT

DRUGS (1)
  1. EYLEA [Suspect]
     Active Substance: AFLIBERCEPT
     Indication: DIABETIC RETINAL OEDEMA
     Dosage: 2 MG, ONE APPLICATION MONTHLY DURING 3 MONTHS, THEN, 1 APPLICATION EVERY TWO MONTHS FOR A YEAR
     Route: 031
     Dates: start: 20160823

REACTIONS (1)
  - Abdominal abscess [Recovering/Resolving]
